FAERS Safety Report 7669462-0 (Version None)
Quarter: 2011Q3

REPORT INFORMATION
  Report Type: 
  Country: None (occurrence: None)
  Receive Date: 20110808
  Receipt Date: 20110728
  Transmission Date: 20111222
  Serious: Yes (Hospitalization, Other)
  Sender: FDA-Public Use
  Company Number: US-BAYER-2011-038825

PATIENT
  Age: 28 Year
  Sex: Female
  Weight: 59 kg

DRUGS (9)
  1. TOPAMAX [Concomitant]
     Dosage: 100 MG, UNK
     Route: 048
     Dates: start: 20080101, end: 20100101
  2. CYCLOBENZAPRINE [Concomitant]
     Dosage: 10 MG, UNK
     Route: 048
  3. YAZ [Suspect]
     Indication: CONTRACEPTION
     Dosage: UNK
     Dates: start: 20080917, end: 20091001
  4. ZITHROMAX [Concomitant]
     Dosage: UNK
     Dates: start: 20060101, end: 20090101
  5. PERCOCET [Concomitant]
  6. NEXIUM [Concomitant]
     Dosage: 40 MG, UNK
     Route: 048
     Dates: start: 20090601, end: 20090901
  7. PROMETHAZINE [Concomitant]
     Dosage: 25 MG, UNK
     Route: 048
  8. MAXALT [Concomitant]
     Dosage: 10 MG, UNK
     Route: 048
     Dates: start: 20080101, end: 20100101
  9. CIPROFLOXACIN HCL [Concomitant]
     Dosage: 500 MG, UNK
     Route: 048
     Dates: start: 20090924, end: 20090925

REACTIONS (7)
  - CHOLECYSTITIS CHRONIC [None]
  - INJURY [None]
  - ABDOMINAL PAIN UPPER [None]
  - DECREASED APPETITE [None]
  - NAUSEA [None]
  - VOMITING [None]
  - ABDOMINAL PAIN [None]
